FAERS Safety Report 17610559 (Version 1)
Quarter: 2020Q2

REPORT INFORMATION
  Report Type: Spontaneous
  Country: US (occurrence: US)
  Receive Date: 20200401
  Receipt Date: 20200401
  Transmission Date: 20200713
  Serious: Yes (Hospitalization)
  Sender: FDA-Public Use
  Company Number: None

PATIENT
  Age: 49 Year
  Sex: Male

DRUGS (6)
  1. INLYTA [Suspect]
     Active Substance: AXITINIB
     Indication: NEOPLASM MALIGNANT
     Route: 048
     Dates: start: 20200318
  2. NYSTATIN. [Concomitant]
     Active Substance: NYSTATIN
  3. INLYTA [Suspect]
     Active Substance: AXITINIB
     Indication: CARCINOID TUMOUR
     Route: 048
     Dates: start: 20200318
  4. ENOXAPARIN [Concomitant]
     Active Substance: ENOXAPARIN
  5. GABAPENTIN. [Concomitant]
     Active Substance: GABAPENTIN
  6. DOXYCYCLINE. [Concomitant]
     Active Substance: DOXYCYCLINE

REACTIONS (2)
  - Wound [None]
  - Surgery [None]

NARRATIVE: CASE EVENT DATE: 20200201
